FAERS Safety Report 6602726-8 (Version None)
Quarter: 2010Q1

REPORT INFORMATION
  Report Type: 
  Country: None (occurrence: None)
  Receive Date: 20100218
  Receipt Date: 20100204
  Transmission Date: 20100710
  Serious: Yes (Death)
  Sender: FDA-Public Use
  Company Number: 004772

PATIENT
  Sex: Male
  Weight: 74.6 kg

DRUGS (6)
  1. ROTIGOTINE (ROTIGOTINE) [Suspect]
     Indication: PARKINSON'S DISEASE
     Dosage: (6 MG QD TRANSDERMAL)
     Route: 062
     Dates: start: 20081202
  2. LEVODOPA [Concomitant]
  3. MADOPAR /00349201/ [Concomitant]
  4. ENTACAPONE [Concomitant]
  5. LISINOPRIL [Concomitant]
  6. ASPIRIN /01428701/ [Concomitant]

REACTIONS (6)
  - ABDOMINAL PAIN [None]
  - AORTIC ANEURYSM RUPTURE [None]
  - BACK PAIN [None]
  - CIRCULATORY COLLAPSE [None]
  - EMBOLISM [None]
  - SUDDEN DEATH [None]
